FAERS Safety Report 5472176-9 (Version None)
Quarter: 2007Q3

REPORT INFORMATION
  Report Type: 
  Country: None (occurrence: None)
  Receive Date: 20070928
  Receipt Date: 20070921
  Transmission Date: 20080115
  Serious: Yes (Other)
  Sender: FDA-Public Use
  Company Number: US-GENENTECH-248224

PATIENT
  Sex: Female
  Weight: 113.38 kg

DRUGS (16)
  1. XOLAIR [Suspect]
     Indication: ASTHMA
     Dosage: 150 MG, 1/MONTH
     Route: 058
  2. LISINOPRIL [Concomitant]
     Indication: DRUG USE FOR UNKNOWN INDICATION
  3. ABILIFY [Concomitant]
     Indication: DRUG USE FOR UNKNOWN INDICATION
  4. LEXAPRO [Concomitant]
     Indication: DRUG USE FOR UNKNOWN INDICATION
  5. ACTOS [Concomitant]
     Indication: DRUG USE FOR UNKNOWN INDICATION
  6. EPIPEN [Concomitant]
     Indication: DRUG USE FOR UNKNOWN INDICATION
  7. NITROQUICK [Concomitant]
     Indication: DRUG USE FOR UNKNOWN INDICATION
  8. ASPIRIN [Concomitant]
     Indication: DRUG USE FOR UNKNOWN INDICATION
  9. FUROSEMIDE [Concomitant]
     Indication: DRUG USE FOR UNKNOWN INDICATION
  10. NOVOLOG [Concomitant]
     Indication: DRUG USE FOR UNKNOWN INDICATION
  11. DARVOCET [Concomitant]
     Indication: DRUG USE FOR UNKNOWN INDICATION
  12. POTASSIUM CHLORIDE [Concomitant]
     Indication: DRUG USE FOR UNKNOWN INDICATION
  13. BENADRYL [Concomitant]
     Indication: DRUG USE FOR UNKNOWN INDICATION
  14. ESTROGEN [Concomitant]
     Indication: DRUG USE FOR UNKNOWN INDICATION
  15. LIPITOR [Concomitant]
     Indication: DRUG USE FOR UNKNOWN INDICATION
  16. ZANTAC [Concomitant]
     Indication: DRUG USE FOR UNKNOWN INDICATION

REACTIONS (1)
  - HYPERSENSITIVITY [None]
